FAERS Safety Report 8566277-6 (Version None)
Quarter: 2012Q3

REPORT INFORMATION
  Report Type: 
  Country: None (occurrence: None)
  Receive Date: 20120730
  Receipt Date: 20120730
  Transmission Date: 20120928
  Serious: No
  Sender: FDA-Public Use
  Company Number: None

PATIENT
  Age: 55 Year
  Sex: Male
  Weight: 143.6 kg

DRUGS (1)
  1. FUROSEMIDE [Suspect]
     Indication: CARDIAC FAILURE CONGESTIVE
     Dosage: 20 MG  PO
     Route: 048
     Dates: start: 20120503, end: 20120509

REACTIONS (4)
  - CHILLS [None]
  - RASH ERYTHEMATOUS [None]
  - PYREXIA [None]
  - ERYTHEMA MULTIFORME [None]
